FAERS Safety Report 6166290-2 (Version None)
Quarter: 2009Q2

REPORT INFORMATION
  Report Type: 
  Country: None (occurrence: None)
  Receive Date: 20090422
  Receipt Date: 20090422
  Transmission Date: 20091009
  Serious: Yes (Life-Threatening, Hospitalization)
  Sender: FDA-Public Use
  Company Number: None

PATIENT
  Age: 61 Year
  Sex: Male
  Weight: 56.6996 kg

DRUGS (4)
  1. EXFORGE [Suspect]
     Indication: HEADACHE
     Dosage: ONE CAPLET 1/DAY ORAL
     Route: 048
     Dates: start: 20090329, end: 20090330
  2. EXFORGE [Suspect]
     Indication: HYPERTENSION
     Dosage: ONE CAPLET 1/DAY ORAL
     Route: 048
     Dates: start: 20090329, end: 20090330
  3. XANAX [Concomitant]
  4. LEVSIN [Concomitant]

REACTIONS (4)
  - HYPERTENSION [None]
  - MIGRAINE [None]
  - NECK PAIN [None]
  - NERVOUS SYSTEM DISORDER [None]
